FAERS Safety Report 8854117 (Version 1)
Quarter: 2012Q4

REPORT INFORMATION
  Report Type: Spontaneous
  Country: US (occurrence: None)
  Receive Date: 20121019
  Receipt Date: 20121019
  Transmission Date: 20130627
  Serious: No
  Sender: FDA-Public Use
  Company Number: None

PATIENT
  Age: 57 Year
  Sex: Male

DRUGS (2)
  1. CEFAZOLIN [Suspect]
     Indication: KNEE OPERATION
     Dates: start: 20110708, end: 20110708
  2. TORADOL [Suspect]
     Indication: KNEE OPERATION
     Dates: start: 20110708, end: 20110708

REACTIONS (2)
  - Drug-induced liver injury [None]
  - Hepatitis cholestatic [None]
